FAERS Safety Report 11604952 (Version 3)
Quarter: 2015Q4

REPORT INFORMATION
  Report Type: Spontaneous
  Country: US (occurrence: US)
  Receive Date: 20151007
  Receipt Date: 20151027
  Transmission Date: 20160304
  Serious: Yes (Hospitalization)
  Sender: FDA-Public Use
  Company Number: US-UNITED THERAPEUTICS-UNT-2015-011787

PATIENT
  Age: 52 Year
  Sex: Female
  Weight: 92.52 kg

DRUGS (7)
  1. LETAIRIS [Concomitant]
     Active Substance: AMBRISENTAN
     Indication: PRODUCT USED FOR UNKNOWN INDICATION
  2. REMODULIN [Suspect]
     Active Substance: TREPROSTINIL
     Dosage: 0.014 ?G/KG, CONTINUING
     Route: 058
  3. REVATIO [Concomitant]
     Active Substance: SILDENAFIL CITRATE
     Indication: PRODUCT USED FOR UNKNOWN INDICATION
  4. ADCIRCA [Concomitant]
     Active Substance: TADALAFIL
     Indication: PRODUCT USED FOR UNKNOWN INDICATION
  5. REMODULIN [Suspect]
     Active Substance: TREPROSTINIL
     Indication: PULMONARY HYPERTENSION
     Dosage: 0.014 ?G/KG, CONTINUING
     Route: 058
     Dates: start: 20150825
  6. REMODULIN [Suspect]
     Active Substance: TREPROSTINIL
     Dosage: 0.014 ?G/KG, CONTINUING
     Route: 058
     Dates: start: 20150925
  7. OPSUMIT [Concomitant]
     Active Substance: MACITENTAN
     Indication: PRODUCT USED FOR UNKNOWN INDICATION

REACTIONS (14)
  - Head discomfort [Unknown]
  - Depressed mood [Unknown]
  - Dyspnoea [Unknown]
  - Pain in extremity [Unknown]
  - Infusion site pain [Unknown]
  - Oxygen saturation decreased [Unknown]
  - Infusion site oedema [Unknown]
  - Diarrhoea [Unknown]
  - Infusion site erythema [Unknown]
  - Pain in jaw [Unknown]
  - Influenza like illness [Unknown]
  - Drug dose omission [Unknown]
  - Face oedema [Unknown]
  - Device dislocation [Unknown]

NARRATIVE: CASE EVENT DATE: 201509
